FAERS Safety Report 6650139-5 (Version None)
Quarter: 2010Q1

REPORT INFORMATION
  Report Type: 
  Country: None (occurrence: None)
  Receive Date: 20100325
  Receipt Date: 20100316
  Transmission Date: 20100710
  Serious: Yes (Other)
  Sender: FDA-Public Use
  Company Number: AT-ASTRAZENECA-2010SE01579

PATIENT
  Age: 68 Year
  Sex: Female
  Weight: 63 kg

DRUGS (1)
  1. ATACAND HCT [Suspect]
     Dosage: 16 MG
     Route: 048
     Dates: start: 20090407, end: 20100315

REACTIONS (2)
  - HEPATIC ENZYME INCREASED [None]
  - HEPATITIS C [None]
